FAERS Safety Report 21447843 (Version 1)
Quarter: 2022Q4

REPORT INFORMATION
  Report Type: Spontaneous
  Country: DE (occurrence: DE)
  Receive Date: 20221012
  Receipt Date: 20221012
  Transmission Date: 20230113
  Serious: Yes (Hospitalization)
  Sender: FDA-Public Use
  Company Number: DE-ADRED-07724-01

PATIENT
  Age: 68 Year
  Sex: Male
  Weight: 110 kg

DRUGS (5)
  1. HALOPERIDOL [Suspect]
     Active Substance: HALOPERIDOL
     Indication: Product used for unknown indication
     Dosage: 50 MG, ACCORDING TO SCHEME, AMPOULES
     Route: 065
  2. HYDROCHLOROTHIAZIDE\RAMIPRIL [Suspect]
     Active Substance: HYDROCHLOROTHIAZIDE\RAMIPRIL
     Indication: Product used for unknown indication
     Dosage: 1 DOSAGE FORMS DAILY; 252|5 MG, 0.5-0-0.5-0, TABLETS, 0.5 DOSAGE FORMS, TWO TIMES A DAY
     Route: 065
  3. METFORMIN\SITAGLIPTIN [Concomitant]
     Active Substance: METFORMIN\SITAGLIPTIN
     Indication: Product used for unknown indication
     Dosage: 2 DOSAGE FORMS DAILY; 1000|50 MG, 1-0-1-0, TABLETS,1 DOSAGE FORMS, TWO TIMES A DAY
     Route: 065
  4. INSULIN GLULISINE [Concomitant]
     Active Substance: INSULIN GLULISINE
     Indication: Product used for unknown indication
     Dosage: 1 IU, 25-25-25-0, CYLINDER AMPOULES, INSULIN GLULISIN
     Route: 065
  5. INSULIN GLARGINE [Concomitant]
     Active Substance: INSULIN GLARGINE
     Indication: Product used for unknown indication
     Dosage: 1 IU, 0-0-0-24, CYLINDER AMPOULES, INSULIN GLARGIN
     Route: 065

REACTIONS (10)
  - Decreased appetite [Unknown]
  - Weight decreased [Unknown]
  - Constipation [Unknown]
  - Balance disorder [Unknown]
  - General physical health deterioration [Unknown]
  - Fatigue [Unknown]
  - Memory impairment [Unknown]
  - Muscular weakness [Unknown]
  - Oliguria [Unknown]
  - Dysuria [Unknown]
